FAERS Safety Report 6102308-0 (Version None)
Quarter: 2009Q1

REPORT INFORMATION
  Report Type: 
  Country: None (occurrence: None)
  Receive Date: 20090304
  Receipt Date: 20090227
  Transmission Date: 20090719
  Serious: Yes (Other)
  Sender: FDA-Public Use
  Company Number: JP-AVENTIS-200910042JP

PATIENT
  Age: 57 Year
  Sex: Female
  Weight: 41.6 kg

DRUGS (8)
  1. CLEXANE [Suspect]
     Dosage: DOSE: 2000 IU
     Route: 058
     Dates: start: 20081218, end: 20081223
  2. PANSPORIN [Concomitant]
     Indication: INFECTION PROPHYLAXIS
     Dosage: DOSE: 1 G
     Route: 042
     Dates: start: 20081217, end: 20081221
  3. FERROMIA                           /00023516/ [Concomitant]
     Dosage: DOSE: 50 MG
     Route: 048
     Dates: start: 20081218, end: 20090123
  4. IRZAIM [Concomitant]
     Dosage: DOSE: 10 MG
     Route: 048
     Dates: start: 20081218, end: 20081231
  5. MUCOSTA [Concomitant]
     Indication: PROPHYLAXIS
     Dosage: DOSE: 100 MG
     Route: 048
     Dates: start: 20081218, end: 20081231
  6. LOXONIN                            /00890701/ [Concomitant]
     Indication: PAIN
     Dosage: DOSE: 60 MG
     Route: 048
     Dates: start: 20081218, end: 20081231
  7. ADEFURONIC [Concomitant]
     Indication: PAIN
     Dosage: DOSE: 50 MG
     Route: 054
     Dates: start: 20081218, end: 20081221
  8. AMOLIN                             /00249602/ [Concomitant]
     Indication: INFECTION PROPHYLAXIS
     Dosage: DOSE: 250 MG
     Route: 048
     Dates: start: 20081222, end: 20081228

REACTIONS (4)
  - ALANINE AMINOTRANSFERASE INCREASED [None]
  - ASPARTATE AMINOTRANSFERASE INCREASED [None]
  - HEPATIC FUNCTION ABNORMAL [None]
  - LIVER INJURY [None]
